FAERS Safety Report 5321705-4 (Version None)
Quarter: 2007Q2

REPORT INFORMATION
  Report Type: 
  Country: None (occurrence: None)
  Receive Date: 20070510
  Receipt Date: 20070425
  Transmission Date: 20071010
  Serious: Yes (Hospitalization, Other)
  Sender: FDA-Public Use
  Company Number: BG-SHR-BG-2007-002385

PATIENT
  Age: 62 Year
  Sex: Female

DRUGS (2)
  1. CAMPATH [Suspect]
     Route: 042
     Dates: start: 20060508, end: 20061013
  2. FLUDARABINE PHOSPHATE [Suspect]
     Route: 042
     Dates: start: 20060508, end: 20061013

REACTIONS (1)
  - NEUROPATHY [None]
